FAERS Safety Report 6496044-9 (Version None)
Quarter: 2009Q4

REPORT INFORMATION
  Report Type: 
  Country: None (occurrence: None)
  Receive Date: 20091214
  Receipt Date: 20090921
  Transmission Date: 20100525
  Serious: No
  Sender: FDA-Public Use
  Company Number: US-BRISTOL-MYERS SQUIBB COMPANY-14786958

PATIENT
  Age: 63 Year
  Sex: Male
  Weight: 78 kg

DRUGS (5)
  1. ABILIFY [Suspect]
     Indication: DEPRESSION
     Dosage: RECEIVED FOR 2 MONTHS
  2. METHADONE [Concomitant]
  3. VALIUM [Concomitant]
  4. TOPROL-XL [Concomitant]
  5. PAXIL [Concomitant]

REACTIONS (2)
  - LETHARGY [None]
  - SOMNOLENCE [None]
